FAERS Safety Report 4301420-6 (Version None)
Quarter: 2004Q1

REPORT INFORMATION
  Report Type: 
  Country: None (occurrence: None)
  Receive Date: 20040219
  Receipt Date: 20040204
  Transmission Date: 20041129
  Serious: Yes (Hospitalization)
  Sender: FDA-Public Use
  Company Number: JP-SHR-03-018251

PATIENT
  Age: 41 Year
  Sex: Male
  Weight: 57.1 kg

DRUGS (1)
  1. BETAFERON (INTERFERON BETA - 1B) INJECTION, 250UG [Suspect]
     Indication: MULTIPLE SCLEROSIS
     Dosage: 8 MIU, EVERY 2D, SUBCUTANEOUS
     Route: 058
     Dates: start: 20030301, end: 20031101

REACTIONS (5)
  - CEREBRAL INFARCTION [None]
  - HEMIANOPIA HOMONYMOUS [None]
  - HYPOAESTHESIA [None]
  - HYPOAESTHESIA ORAL [None]
  - VISUAL ACUITY REDUCED [None]
